FAERS Safety Report 11633498 (Version 1)
Quarter: 2015Q4

REPORT INFORMATION
  Report Type: Spontaneous
  Country: US (occurrence: US)
  Receive Date: 20151015
  Receipt Date: 20151015
  Transmission Date: 20160304
  Serious: No
  Sender: FDA-Public Use
  Company Number: US-009507513-1510USA001655

PATIENT
  Age: 51 Year
  Sex: Female

DRUGS (2)
  1. NASONEX [Suspect]
     Active Substance: MOMETASONE FUROATE
     Indication: HYPERSENSITIVITY
     Dosage: 50 MICROGRAM, ONE SPRAY IN EACH NOSTRIL TWICE A DAY, STRENGTH 50 (UNITS NOT PROVIDED)
     Route: 045
  2. NASONEX [Suspect]
     Active Substance: MOMETASONE FUROATE
     Indication: ASTHMA
     Dosage: 50 MICROGRAM, 2 SPRAYS IN EACH NOSTRIL, DAILY, STRENGTH 50 (UNITS NOT PROVIDED)
     Route: 045

REACTIONS (6)
  - Medication error [Unknown]
  - Rhinorrhoea [Unknown]
  - Asthma [Unknown]
  - Drug dose omission [Unknown]
  - Productive cough [Unknown]
  - Dyspnoea [Unknown]
